FAERS Safety Report 8859435 (Version 24)
Quarter: 2016Q1

REPORT INFORMATION
  Report Type: Spontaneous
  Country: CA (occurrence: CA)
  Receive Date: 20121024
  Receipt Date: 20160331
  Transmission Date: 20160526
  Serious: Yes (Other)
  Sender: FDA-Public Use
  Company Number: CA-ROCHE-1146314

PATIENT
  Age: 66 Year
  Sex: Female
  Weight: 101 kg

DRUGS (25)
  1. XOLAIR [Suspect]
     Active Substance: OMALIZUMAB
     Route: 058
     Dates: start: 20091221
  2. XOLAIR [Suspect]
     Active Substance: OMALIZUMAB
     Route: 058
     Dates: start: 20140228
  3. XOLAIR [Suspect]
     Active Substance: OMALIZUMAB
     Route: 058
     Dates: start: 20141205
  4. XOLAIR [Suspect]
     Active Substance: OMALIZUMAB
     Route: 058
     Dates: start: 20160323
  5. XOLAIR [Suspect]
     Active Substance: OMALIZUMAB
     Route: 058
     Dates: start: 20091026
  6. XOLAIR [Suspect]
     Active Substance: OMALIZUMAB
     Route: 058
     Dates: start: 20100316
  7. XOLAIR [Suspect]
     Active Substance: OMALIZUMAB
     Route: 058
     Dates: start: 20140815
  8. XOLAIR [Suspect]
     Active Substance: OMALIZUMAB
     Route: 058
     Dates: start: 20150925
  9. XOLAIR [Suspect]
     Active Substance: OMALIZUMAB
     Route: 058
     Dates: start: 20140829
  10. XOLAIR [Suspect]
     Active Substance: OMALIZUMAB
     Route: 058
     Dates: start: 20160311
  11. AVELOX [Suspect]
     Active Substance: MOXIFLOXACIN HYDROCHLORIDE
     Indication: PHARYNGITIS BACTERIAL
     Route: 065
     Dates: start: 20160110, end: 20160117
  12. XOLAIR [Suspect]
     Active Substance: OMALIZUMAB
     Route: 058
     Dates: start: 20100301
  13. XOLAIR [Suspect]
     Active Substance: OMALIZUMAB
     Route: 058
     Dates: start: 20110428
  14. XOLAIR [Suspect]
     Active Substance: OMALIZUMAB
     Route: 058
     Dates: start: 20150313
  15. XOLAIR [Suspect]
     Active Substance: OMALIZUMAB
     Route: 058
     Dates: start: 20091109
  16. XOLAIR [Suspect]
     Active Substance: OMALIZUMAB
     Route: 058
     Dates: start: 20151106
  17. PREDNISONE. [Concomitant]
     Active Substance: PREDNISONE
     Route: 065
     Dates: start: 20100421
  18. PREDNISONE. [Concomitant]
     Active Substance: PREDNISONE
     Route: 065
     Dates: end: 20100430
  19. XOLAIR [Suspect]
     Active Substance: OMALIZUMAB
     Route: 058
     Dates: start: 20100329
  20. XOLAIR [Suspect]
     Active Substance: OMALIZUMAB
     Route: 058
     Dates: start: 20141107
  21. XOLAIR [Suspect]
     Active Substance: OMALIZUMAB
     Route: 058
     Dates: start: 20141121
  22. CETIRIZINE [Concomitant]
     Active Substance: CETIRIZINE HYDROCHLORIDE
  23. XOLAIR [Suspect]
     Active Substance: OMALIZUMAB
     Indication: ASTHMA
     Route: 058
     Dates: start: 20090813
  24. PREDNISONE. [Concomitant]
     Active Substance: PREDNISONE
     Route: 065
     Dates: start: 20100501
  25. OXEZE [Concomitant]

REACTIONS (41)
  - Sinusitis [Recovering/Resolving]
  - Bronchial disorder [Recovered/Resolved]
  - Weight increased [Unknown]
  - Wheezing [Unknown]
  - Heart rate increased [Unknown]
  - Oedema [Unknown]
  - Lung infection pseudomonal [Unknown]
  - Sneezing [Unknown]
  - Joint dislocation [Unknown]
  - Joint injury [Unknown]
  - Injection site vesicles [Recovered/Resolved]
  - Increased bronchial secretion [Unknown]
  - Poor quality sleep [Unknown]
  - Asthma [Unknown]
  - Pharyngitis bacterial [Unknown]
  - Dysphonia [Unknown]
  - Vomiting [Unknown]
  - Burning sensation [Unknown]
  - Cough [Recovering/Resolving]
  - Respiratory tract inflammation [Unknown]
  - Sputum discoloured [Unknown]
  - Wound [Recovering/Resolving]
  - Skin lesion [Unknown]
  - Dizziness [Recovering/Resolving]
  - Respiratory tract infection [Unknown]
  - Chest discomfort [Unknown]
  - Throat irritation [Unknown]
  - Sense of oppression [Unknown]
  - Fatigue [Unknown]
  - Productive cough [Unknown]
  - Anxiety [Unknown]
  - Bronchitis [Recovering/Resolving]
  - Somnolence [Unknown]
  - Weight decreased [Unknown]
  - Fall [Unknown]
  - Hypersensitivity [Unknown]
  - Blood pressure increased [Unknown]
  - Cellulitis [Unknown]
  - Headache [Unknown]
  - Bronchospasm [Recovered/Resolved]
  - Body temperature decreased [Unknown]

NARRATIVE: CASE EVENT DATE: 20100316
